FAERS Safety Report 23937681 (Version 1)
Quarter: 2024Q2

REPORT INFORMATION
  Report Type: Spontaneous
  Country: US (occurrence: US)
  Receive Date: 20240604
  Receipt Date: 20240604
  Transmission Date: 20240715
  Serious: No
  Sender: FDA-Public Use
  Company Number: US-AZURITY PHARMACEUTICALS, INC.-US-2024AZR000172

PATIENT
  Age: 52 Year
  Sex: Male

DRUGS (1)
  1. TESTOSTERONE CYPIONATE [Suspect]
     Active Substance: TESTOSTERONE CYPIONATE
     Indication: Erectile dysfunction
     Dosage: 0.75 ML, WEEKLY (EVERY 7 DAYS)
     Route: 030
     Dates: start: 20240205

REACTIONS (4)
  - Product dose omission issue [Unknown]
  - Product use in unapproved indication [Unknown]
  - Product deposit [Unknown]
  - Liquid product physical issue [Unknown]

NARRATIVE: CASE EVENT DATE: 20240201
